FAERS Safety Report 10101645 (Version 2)
Quarter: 2014Q2

REPORT INFORMATION
  Report Type: Spontaneous
  Country: JP (occurrence: JP)
  Receive Date: 20140424
  Receipt Date: 20140424
  Transmission Date: 20141212
  Serious: Yes (Death, Hospitalization)
  Sender: FDA-Public Use
  Company Number: JP-BAYER-2014-017130

PATIENT
  Age: 69 Year
  Sex: Female
  Weight: 54.97 kg

DRUGS (9)
  1. XARELTO [Suspect]
     Indication: ATRIAL FIBRILLATION
     Dosage: 10 MG, QD
     Route: 048
     Dates: start: 20131120, end: 20140114
  2. XARELTO [Interacting]
     Indication: CEREBROVASCULAR ACCIDENT PROPHYLAXIS
  3. BAYASPIRIN [Interacting]
     Indication: ANGINA PECTORIS
     Dosage: 100 MG
     Route: 048
     Dates: start: 20131218, end: 20140114
  4. FLUITRAN [Concomitant]
     Indication: CARDIAC FAILURE
     Dosage: 2 MG
     Route: 048
     Dates: start: 20131218, end: 20140114
  5. LANIRAPID [Concomitant]
     Indication: ATRIAL FIBRILLATION
     Dosage: 05 MG
     Route: 048
     Dates: start: 20131218, end: 20140114
  6. MAINTATE [Concomitant]
     Indication: VENTRICULAR TACHYCARDIA
     Dosage: 5 MG
     Route: 048
     Dates: start: 20131218, end: 20140114
  7. GASTER [Concomitant]
     Dosage: 20 MG,
  8. MEXITIL [Concomitant]
     Indication: VENTRICULAR TACHYCARDIA
     Dosage: 300 MG
     Route: 048
     Dates: start: 20131218, end: 20140114
  9. SEROQUEL [Concomitant]
     Indication: INSOMNIA
     Dosage: 25 MG HS
     Route: 048
     Dates: start: 20131218, end: 20140114

REACTIONS (3)
  - Cerebral haemorrhage [Fatal]
  - Altered state of consciousness [Fatal]
  - Drug interaction [None]
